FAERS Safety Report 13320223 (Version 1)
Quarter: 2017Q1

REPORT INFORMATION
  Report Type: Spontaneous
  Country: US (occurrence: US)
  Receive Date: 20170308
  Receipt Date: 20170308
  Transmission Date: 20170428
  Serious: No
  Sender: FDA-Public Use
  Company Number: US-AMGEN-USASP2016126718

PATIENT
  Age: 76 Year
  Sex: Female

DRUGS (1)
  1. SENSIPAR [Suspect]
     Active Substance: CINACALCET HYDROCHLORIDE
     Indication: HYPERPARATHYROIDISM SECONDARY
     Dosage: A30 MG, EVERY OTHER DAY
     Route: 065
     Dates: start: 2014

REACTIONS (4)
  - Off label use [Unknown]
  - Blood creatinine increased [Unknown]
  - Hyperparathyroidism [Unknown]
  - Renal disorder [Unknown]
